FAERS Safety Report 6324256-3 (Version None)
Quarter: 2009Q3

REPORT INFORMATION
  Report Type: 
  Country: None (occurrence: None)
  Receive Date: 20090824
  Receipt Date: 20090519
  Transmission Date: 20100115
  Serious: No
  Sender: FDA-Public Use
  Company Number: US-ABBOTT-09P-163-0574577-00

PATIENT
  Sex: Female
  Weight: 96.702 kg

DRUGS (7)
  1. NIASPAN [Suspect]
     Indication: HIGH DENSITY LIPOPROTEIN DECREASED
     Route: 048
     Dates: start: 20090505
  2. NIASPAN [Suspect]
     Indication: BLOOD TRIGLYCERIDES INCREASED
  3. SIMVICORT [Concomitant]
     Indication: ASTHMA
     Route: 055
  4. NABUMETONE [Concomitant]
     Indication: ANTIINFLAMMATORY THERAPY
     Route: 048
  5. KLONOPIN [Concomitant]
     Indication: PANIC DISORDER
     Dosage: 1 .5 TABS IN AM AND 2.5 TABS AT BEDTIME
     Route: 048
  6. SINGULAIR [Concomitant]
     Indication: HYPERSENSITIVITY
     Route: 048
  7. ALBUTEROL [Concomitant]
     Indication: ASTHMA

REACTIONS (2)
  - FLUSHING [None]
  - RASH MACULAR [None]
